FAERS Safety Report 20050385 (Version 2)
Quarter: 2021Q4

REPORT INFORMATION
  Report Type: Spontaneous
  Country: BR (occurrence: BR)
  Receive Date: 20211109
  Receipt Date: 20211110
  Transmission Date: 20220303
  Serious: Yes (Life-Threatening)
  Sender: FDA-Public Use
  Company Number: None

PATIENT
  Age: 69 Year
  Sex: Female
  Weight: 56 kg

DRUGS (3)
  1. KEYTRUDA [Suspect]
     Active Substance: PEMBROLIZUMAB
     Indication: Breast cancer
     Dosage: STRENGTH 100MG /4 ML, 200 MG
     Route: 042
     Dates: start: 20190607, end: 20190823
  2. NAVELBINE [Suspect]
     Active Substance: VINORELBINE TARTRATE
     Indication: Breast cancer
     Dosage: STRENGTH 10MG/ML, 31 (UNITS NOT PROVIDED)
     Route: 042
     Dates: start: 20190607, end: 20190823
  3. ATORVASTATIN CALCIUM [Suspect]
     Active Substance: ATORVASTATIN CALCIUM
     Indication: Breast cancer
     Dosage: STRENGTH 25MG/ML, 825 MG
     Route: 042
     Dates: start: 20190607, end: 20190823

REACTIONS (1)
  - Neutropenia [Recovered/Resolved]

NARRATIVE: CASE EVENT DATE: 20190809
